FAERS Safety Report 12310554 (Version 1)
Quarter: 2016Q2

REPORT INFORMATION
  Report Type: Spontaneous
  Country: US (occurrence: US)
  Receive Date: 20160427
  Receipt Date: 20160427
  Transmission Date: 20160815
  Serious: Yes (Other)
  Sender: FDA-Public Use
  Company Number: US-CELGENEUS-USA-2016043529

PATIENT
  Sex: Male

DRUGS (1)
  1. THALOMID [Suspect]
     Active Substance: THALIDOMIDE
     Indication: MALIGNANT NEOPLASM OF SPINAL CORD
     Dosage: 200 MILLIGRAM
     Route: 048
     Dates: start: 201501

REACTIONS (1)
  - Toxicity to various agents [Unknown]
